FAERS Safety Report 25283286 (Version 1)
Quarter: 2025Q2

REPORT INFORMATION
  Report Type: Spontaneous
  Country: US (occurrence: None)
  Receive Date: 20250507
  Receipt Date: 20250507
  Transmission Date: 20250717
  Serious: No
  Sender: FDA-CTU
  Company Number: None

PATIENT
  Age: 59 Year
  Sex: Female
  Weight: 83.25 kg

DRUGS (2)
  1. CYANOCOBALAMIN\LEVOCARNITINE\SEMAGLUTIDE [Suspect]
     Active Substance: CYANOCOBALAMIN\LEVOCARNITINE\SEMAGLUTIDE
     Indication: Weight decreased
     Route: 050
     Dates: start: 20241231, end: 20250505
  2. CYANOCOBALAMIN\SEMAGLUTIDE [Suspect]
     Active Substance: CYANOCOBALAMIN\SEMAGLUTIDE
     Indication: Weight decreased
     Route: 050

REACTIONS (7)
  - Nausea [None]
  - Dizziness [None]
  - Fatigue [None]
  - Palpitations [None]
  - Hypophagia [None]
  - Dyspnoea [None]
  - Overdose [None]

NARRATIVE: CASE EVENT DATE: 20250504
